FAERS Safety Report 18322159 (Version 2)
Quarter: 2020Q4

REPORT INFORMATION
  Report Type: Spontaneous
  Country: JP (occurrence: JP)
  Receive Date: 20200929
  Receipt Date: 20201013
  Transmission Date: 20210113
  Serious: Yes (Death, Other)
  Sender: FDA-Public Use
  Company Number: NVSJ2020JP009344

PATIENT
  Age: 74 Year
  Sex: Female

DRUGS (1)
  1. ENTRESTO [Suspect]
     Active Substance: SACUBITRIL\VALSARTAN
     Indication: CARDIAC FAILURE CHRONIC
     Dosage: 50 MG
     Route: 048
     Dates: start: 20200907

REACTIONS (2)
  - Pneumonia aspiration [Fatal]
  - Hypokalaemia [Unknown]

NARRATIVE: CASE EVENT DATE: 20200922
